FAERS Safety Report 8740598 (Version 2)
Quarter: 2013Q1

REPORT INFORMATION
  Report Type: Spontaneous
  Country: US (occurrence: US)
  Receive Date: 20120823
  Receipt Date: 20130214
  Transmission Date: 20140127
  Serious: No
  Sender: FDA-Public Use
  Company Number: US-PFIZER INC-2012202453

PATIENT
  Age: 49 Year
  Sex: Male
  Weight: 99.77 kg

DRUGS (1)
  1. VIAGRA [Suspect]
     Dosage: 100 MG, AS NEEDED
     Route: 048
     Dates: start: 201207

REACTIONS (2)
  - Drug ineffective [Unknown]
  - Drug effect delayed [Unknown]
